FAERS Safety Report 20266282 (Version 3)
Quarter: 2022Q1

REPORT INFORMATION
  Report Type: Spontaneous
  Country: DE (occurrence: DE)
  Receive Date: 20211231
  Receipt Date: 20220325
  Transmission Date: 20220423
  Serious: Yes (Hospitalization)
  Sender: FDA-Public Use
  Company Number: DE-SAMSUNG BIOEPIS-SB-2021-29367

PATIENT
  Age: 55 Year
  Sex: Female
  Weight: 52 kg

DRUGS (11)
  1. PERTUZUMAB [Suspect]
     Active Substance: PERTUZUMAB
     Indication: Breast cancer
     Route: 042
     Dates: start: 20210901, end: 20220101
  2. PACLITAXEL [Suspect]
     Active Substance: PACLITAXEL
     Indication: Breast cancer
     Route: 042
     Dates: start: 20210901, end: 20211206
  3. PACLITAXEL [Suspect]
     Active Substance: PACLITAXEL
     Route: 042
     Dates: start: 20210901, end: 20220101
  4. ONTRUZANT [Suspect]
     Active Substance: TRASTUZUMAB-DTTB
     Indication: Breast cancer
     Route: 042
     Dates: start: 20210901, end: 20211206
  5. ONTRUZANT [Suspect]
     Active Substance: TRASTUZUMAB-DTTB
     Route: 042
  6. CARBOPLATIN [Suspect]
     Active Substance: CARBOPLATIN
     Indication: Breast cancer
     Dosage: 5 AUC
     Route: 042
     Dates: start: 20210901, end: 20220101
  7. METAMIZOLE [Concomitant]
     Active Substance: METAMIZOLE
     Indication: Pain
     Route: 048
     Dates: start: 20220102, end: 20220102
  8. MAGNESIUM [Concomitant]
     Active Substance: MAGNESIUM
     Indication: Supplementation therapy
     Route: 048
     Dates: start: 20220107, end: 20220117
  9. UNACID [Concomitant]
     Indication: Infection
     Route: 048
     Dates: start: 20211229, end: 20220101
  10. LORAZEPAM [Concomitant]
     Active Substance: LORAZEPAM
     Indication: Sedative therapy
     Route: 048
     Dates: start: 20220101, end: 20220116
  11. ENOXAPARIN [Concomitant]
     Active Substance: ENOXAPARIN

REACTIONS (5)
  - Anaemia [Unknown]
  - Peripheral sensory neuropathy [Unknown]
  - General physical health deterioration [Recovered/Resolved]
  - Diarrhoea [Unknown]
  - Polyneuropathy [Unknown]

NARRATIVE: CASE EVENT DATE: 20211116
